FAERS Safety Report 11801576 (Version 2)
Quarter: 2015Q4

REPORT INFORMATION
  Report Type: Spontaneous
  Country: US (occurrence: US)
  Receive Date: 20151204
  Receipt Date: 20151214
  Transmission Date: 20160305
  Serious: Yes (Death)
  Sender: FDA-Public Use
  Company Number: US-GUERBET LLC-1045049

PATIENT
  Age: 91 Year
  Sex: Female
  Weight: 63.64 kg

DRUGS (11)
  1. OSCAL [Concomitant]
     Active Substance: CALCIUM CARBONATE
  2. PARACETAMOL [Concomitant]
     Active Substance: ACETAMINOPHEN
  3. OMEPRAZOLE. [Concomitant]
     Active Substance: OMEPRAZOLE
  4. FUROSEMIDE. [Concomitant]
     Active Substance: FUROSEMIDE
  5. TRAMADOL. [Concomitant]
     Active Substance: TRAMADOL
  6. LOSARTAN. [Concomitant]
     Active Substance: LOSARTAN
  7. TERAZOSIN [Concomitant]
     Active Substance: TERAZOSIN\TERAZOSIN HYDROCHLORIDE
  8. DOTAREM [Suspect]
     Active Substance: GADOTERATE MEGLUMINE
     Indication: NUCLEAR MAGNETIC RESONANCE IMAGING BRAIN
     Route: 042
     Dates: start: 20151120, end: 20151120
  9. BUSPIRONE [Concomitant]
     Active Substance: BUSPIRONE HYDROCHLORIDE
  10. PRAVASTATIN [Concomitant]
     Active Substance: PRAVASTATIN\PRAVASTATIN SODIUM
  11. METOPROLOL [Concomitant]
     Active Substance: METOPROLOL

REACTIONS (7)
  - Pulse abnormal [Fatal]
  - Loss of consciousness [Fatal]
  - Unresponsive to stimuli [Fatal]
  - Oxygen saturation decreased [Fatal]
  - Cold sweat [Fatal]
  - Blood pressure immeasurable [Fatal]
  - Hypopnoea [Fatal]

NARRATIVE: CASE EVENT DATE: 20151120
